FAERS Safety Report 19720653 (Version 3)
Quarter: 2021Q3

REPORT INFORMATION
  Report Type: Report from Study
  Country: US (occurrence: US)
  Receive Date: 20210819
  Receipt Date: 20210920
  Transmission Date: 20211014
  Serious: Yes (Other)
  Sender: FDA-Public Use
  Company Number: US-BEH-2021134914

PATIENT
  Age: 66 Year
  Sex: Female
  Weight: 73.47 kg

DRUGS (6)
  1. DEXAMETHASONE. [Concomitant]
     Active Substance: DEXAMETHASONE
     Indication: PREMEDICATION
     Dosage: UNK
     Route: 065
     Dates: start: 20210824
  2. HIZENTRA [Suspect]
     Active Substance: HUMAN IMMUNOGLOBULIN G
     Dosage: 8 UNK QW (REPORTED AS Q7D)
     Route: 058
     Dates: start: 20210730, end: 20210730
  3. HIZENTRA [Suspect]
     Active Substance: HUMAN IMMUNOGLOBULIN G
     Dosage: 8.0 GR 40.0
     Route: 058
  4. ZYRTEC [Concomitant]
     Active Substance: CETIRIZINE HYDROCHLORIDE
     Indication: PREMEDICATION
     Dosage: UNK
     Route: 065
     Dates: start: 20210824
  5. HIZENTRA [Suspect]
     Active Substance: HUMAN IMMUNOGLOBULIN G
     Dosage: 8 UNK
     Route: 058
     Dates: start: 20210827, end: 20210827
  6. TYLENOL 8HR [Concomitant]
     Active Substance: ACETAMINOPHEN
     Indication: PREMEDICATION
     Dosage: UNK
     Route: 065
     Dates: start: 20210824

REACTIONS (16)
  - Headache [Recovered/Resolved]
  - Mast cell activation syndrome [Recovering/Resolving]
  - Tinnitus [Recovered/Resolved]
  - Nausea [Recovered/Resolved]
  - Infusion site erythema [Unknown]
  - Headache [Recovered/Resolved]
  - Infusion site rash [Recovered/Resolved]
  - Nausea [Recovered/Resolved]
  - Skin discolouration [Unknown]
  - Infusion site irritation [Unknown]
  - Pruritus [Recovering/Resolving]
  - Rash [Recovering/Resolving]
  - Exposure to SARS-CoV-2 [Unknown]
  - Dermatitis allergic [Recovering/Resolving]
  - Infusion site irritation [Recovered/Resolved]
  - Tinnitus [Unknown]

NARRATIVE: CASE EVENT DATE: 20210730
